FAERS Safety Report 7484999-5 (Version None)
Quarter: 2011Q2

REPORT INFORMATION
  Report Type: 
  Country: None (occurrence: None)
  Receive Date: 20110517
  Receipt Date: 20101008
  Transmission Date: 20111010
  Serious: No
  Sender: FDA-Public Use
  Company Number: US-BAYER-201022398BCC

PATIENT
  Sex: Male
  Weight: 90.909 kg

DRUGS (5)
  1. LOVAZA [Concomitant]
     Dosage: 1000 MG, UNK
  2. LIPITOR [Concomitant]
     Dosage: 15 MG, UNK
  3. NAPROXEN (ALEVE) [Suspect]
     Indication: PAIN
     Dosage: UNK
     Route: 048
  4. METOPROLOL SUCCINATE [Concomitant]
     Dosage: 50 MG, UNK
  5. ASPIRIN [Concomitant]

REACTIONS (1)
  - DYSGEUSIA [None]
